FAERS Safety Report 7709998-7 (Version None)
Quarter: 2011Q3

REPORT INFORMATION
  Report Type: 
  Country: None (occurrence: None)
  Receive Date: 20110825
  Receipt Date: 20110811
  Transmission Date: 20111222
  Serious: Yes (Hospitalization)
  Sender: FDA-Public Use
  Company Number: PHHY2010US80008

PATIENT
  Sex: Male
  Weight: 51.578 kg

DRUGS (1)
  1. EXJADE [Suspect]
     Indication: MYELODYSPLASTIC SYNDROME
     Dosage: 2500 MG, DAILY
     Route: 048
     Dates: start: 20091221

REACTIONS (8)
  - INFECTION [None]
  - HYPOTENSION [None]
  - PYREXIA [None]
  - PNEUMONIA [None]
  - BACK PAIN [None]
  - FAT TISSUE INCREASED [None]
  - STAPHYLOCOCCAL INFECTION [None]
  - THROMBOSIS [None]
